FAERS Safety Report 9003697 (Version 1)
Quarter: 2013Q1

REPORT INFORMATION
  Report Type: Spontaneous
  Country: US (occurrence: US)
  Receive Date: 20130108
  Receipt Date: 20130108
  Transmission Date: 20140127
  Serious: No
  Sender: FDA-Public Use
  Company Number: US-GLAXOSMITHKLINE-A0962928A

PATIENT
  Age: 68 Year
  Sex: Female

DRUGS (10)
  1. LOVAZA [Suspect]
     Indication: BLOOD TRIGLYCERIDES INCREASED
     Dosage: 4CAP PER DAY
     Route: 048
     Dates: start: 201012
  2. SOMA [Suspect]
  3. ZOCOR [Concomitant]
  4. SYNTHROID [Concomitant]
  5. TOPROL [Concomitant]
  6. XANAX [Concomitant]
  7. SOMA [Concomitant]
  8. TYLENOL [Concomitant]
  9. TRAZODONE [Concomitant]
  10. BENADRYL [Concomitant]

REACTIONS (4)
  - Abdominal pain upper [Recovered/Resolved]
  - Abdominal discomfort [Recovering/Resolving]
  - Nausea [Recovering/Resolving]
  - Abdominal distension [Recovering/Resolving]
